FAERS Safety Report 6963185-9 (Version None)
Quarter: 2010Q3

REPORT INFORMATION
  Report Type: 
  Country: None (occurrence: None)
  Receive Date: 20100902
  Receipt Date: 20100830
  Transmission Date: 20110219
  Serious: Yes (Death)
  Sender: FDA-Public Use
  Company Number: US-CELGENEUS-163-21880-10081661

PATIENT
  Sex: Female

DRUGS (4)
  1. REVLIMID [Suspect]
     Indication: MULTIPLE MYELOMA
     Route: 048
     Dates: start: 20080601, end: 20090101
  2. REVLIMID [Suspect]
     Route: 048
     Dates: start: 20090801, end: 20090101
  3. REVLIMID [Suspect]
     Route: 048
     Dates: start: 20090901
  4. REVLIMID [Suspect]
     Route: 048
     Dates: start: 20100706, end: 20100701

REACTIONS (2)
  - CARDIO-RESPIRATORY ARREST [None]
  - MULTIPLE MYELOMA [None]
